FAERS Safety Report 11224009 (Version 3)
Quarter: 2015Q3

REPORT INFORMATION
  Report Type: Report from Study
  Country: AU (occurrence: AU)
  Receive Date: 20150629
  Receipt Date: 20150713
  Transmission Date: 20151125
  Serious: Yes (Life-Threatening, Hospitalization, Other)
  Sender: FDA-Public Use
  Company Number: PHHY2015AU077252

PATIENT
  Age: 60 Year
  Sex: Female

DRUGS (3)
  1. CLOZARIL [Suspect]
     Active Substance: CLOZAPINE
     Indication: SCHIZOPHRENIA
     Dosage: 300 MG, UNK
     Route: 048
     Dates: start: 19990816
  2. CLOZARIL [Suspect]
     Active Substance: CLOZAPINE
     Dosage: 83 DF, ONCE/SINGLE (83X100 MG TABLETS)
     Route: 048
     Dates: start: 20150625
  3. CLOZARIL [Suspect]
     Active Substance: CLOZAPINE
     Dosage: 325 MG, QHS
     Route: 048

REACTIONS (3)
  - Intentional overdose [Unknown]
  - Suicidal ideation [Unknown]
  - Psychotic disorder [Not Recovered/Not Resolved]

NARRATIVE: CASE EVENT DATE: 20150625
